FAERS Safety Report 15823510 (Version 1)
Quarter: 2019Q1

REPORT INFORMATION
  Report Type: Spontaneous
  Country: HR (occurrence: HR)
  Receive Date: 20190114
  Receipt Date: 20190114
  Transmission Date: 20190417
  Serious: Yes (Other)
  Sender: FDA-Public Use
  Company Number: PHHY2019HR004699

PATIENT
  Age: 11 Year
  Sex: Male

DRUGS (1)
  1. OSPAMOX [Suspect]
     Active Substance: AMOXICILLIN
     Indication: ACUTE SINUSITIS
     Dosage: 2 G, BID
     Route: 048
     Dates: start: 20180911, end: 20180917

REACTIONS (3)
  - Retching [Recovered/Resolved]
  - Abdominal pain [Recovered/Resolved]
  - Nausea [Recovered/Resolved]

NARRATIVE: CASE EVENT DATE: 20180911
